FAERS Safety Report 5757922-9 (Version None)
Quarter: 2008Q2

REPORT INFORMATION
  Report Type: 
  Country: None (occurrence: None)
  Receive Date: 20080602
  Receipt Date: 20080602
  Transmission Date: 20081010
  Serious: Yes (Death, Other)
  Sender: FDA-Public Use
  Company Number: None

PATIENT
  Age: 56 Year
  Sex: Female
  Weight: 31.7518 kg

DRUGS (2)
  1. FENTANYL TRANSDERMAL SYSTEM [Suspect]
     Indication: PAIN
     Dosage: 100 MCG/HR Q72 OTHER
     Route: 050
     Dates: start: 20070817, end: 20080125
  2. FENTANYL CITRATE [Suspect]
     Indication: PAIN
     Dosage: 2500 MCG IN NS 250 CONTINUOUS IV
     Route: 042
     Dates: start: 20080125, end: 20080128

REACTIONS (13)
  - ABNORMAL BEHAVIOUR [None]
  - AGITATION [None]
  - ANOREXIA [None]
  - BLOOD POTASSIUM DECREASED [None]
  - CONFUSIONAL STATE [None]
  - DEPRESSED LEVEL OF CONSCIOUSNESS [None]
  - DIZZINESS [None]
  - FALL [None]
  - HALLUCINATION [None]
  - INCOHERENT [None]
  - ORAL INTAKE REDUCED [None]
  - PARANOIA [None]
  - WEIGHT DECREASED [None]
